FAERS Safety Report 5323291-1 (Version None)
Quarter: 2007Q2

REPORT INFORMATION
  Report Type: 
  Country: None (occurrence: None)
  Receive Date: 20070220
  Receipt Date: 20061128
  Transmission Date: 20071010
  Serious: No
  Sender: FDA-Public Use
  Company Number: WAES 0611USA07260

PATIENT
  Age: 67 Year
  Sex: Male

DRUGS (7)
  1. JANUVIA [Suspect]
     Indication: DIABETES MELLITUS
     Dosage: 100 MG/DAILY/PO
     Route: 048
     Dates: start: 20061107
  2. ACTOS [Concomitant]
  3. ADVAIR DISKUS 100/50 [Concomitant]
  4. ALTACE [Concomitant]
  5. UROXATRAL [Concomitant]
  6. CLOBETASOL PROPIONATE [Concomitant]
  7. METFORMIN HCL [Concomitant]

REACTIONS (4)
  - BLOOD GLUCOSE INCREASED [None]
  - FAECES HARD [None]
  - HEADACHE [None]
  - STOMACH DISCOMFORT [None]
